FAERS Safety Report 6296625-1 (Version None)
Quarter: 2009Q3

REPORT INFORMATION
  Report Type: 
  Country: None (occurrence: None)
  Receive Date: 20090804
  Receipt Date: 20090730
  Transmission Date: 20100115
  Serious: Yes (Hospitalization)
  Sender: FDA-Public Use
  Company Number: US-BRISTOL-MYERS SQUIBB COMPANY-14723563

PATIENT
  Age: 54 Year
  Sex: Female
  Weight: 50 kg

DRUGS (12)
  1. CISPLATIN [Suspect]
     Indication: NON-SMALL CELL LUNG CANCER
     Dosage: D1,D8,D22,D29,D43,D7:16JUL09,LAST DOSE ON 10JUL09
     Route: 042
     Dates: start: 20090521
  2. ALIMTA [Suspect]
     Indication: NON-SMALL CELL LUNG CANCER
     Dosage: VIAL,D1,D22,D43:16JUL09,LAST DOSE ON 10JUL09
     Route: 042
     Dates: start: 20090521
  3. RADIATION THERAPY [Suspect]
     Indication: NON-SMALL CELL LUNG CANCER
     Dosage: 1DOSAGEFORM=180 CGY;ON DAYS 1 THROUGH 49,LAST DOSE ON 16JUL09
     Dates: start: 20090521
  4. FOLIC ACID [Concomitant]
     Dates: start: 20090505
  5. VITAMIN B-12 [Concomitant]
     Dates: start: 20090505
  6. DEXAMETHASONE [Concomitant]
     Dates: start: 20090520
  7. FERROUS SULFATE TAB [Concomitant]
     Dates: start: 20090411
  8. PRILOSEC [Concomitant]
     Dates: start: 20090411
  9. PERCOCET [Concomitant]
     Dates: start: 20090411
  10. PALONOSETRON [Concomitant]
     Dosage: HCL
     Dates: start: 20090419
  11. COMPAZINE [Concomitant]
     Dates: start: 20090518
  12. METOCLOPRAMIDE HCL [Concomitant]
     Dates: start: 20090629

REACTIONS (6)
  - DEHYDRATION [None]
  - DEPRESSION [None]
  - HYPOTENSION [None]
  - ORTHOSTATIC HYPOTENSION [None]
  - URINARY TRACT INFECTION [None]
  - VOMITING [None]
